FAERS Safety Report 11297399 (Version 1)
Quarter: 2015Q3

REPORT INFORMATION
  Report Type: Spontaneous
  Country: US (occurrence: US)
  Receive Date: 20150722
  Receipt Date: 20150722
  Transmission Date: 20151125
  Serious: Yes (Hospitalization, Other)
  Sender: FDA-Public Use
  Company Number: US-ELI_LILLY_AND_COMPANY-US201008000601

PATIENT
  Age: 71 Year
  Sex: Male

DRUGS (5)
  1. ASPIRIN. [Concomitant]
     Active Substance: ASPIRIN
  2. PLAVIX [Concomitant]
     Active Substance: CLOPIDOGREL BISULFATE
     Dosage: 75 MG, UNKNOWN
     Dates: start: 20100727
  3. EFFIENT [Suspect]
     Active Substance: PRASUGREL HYDROCHLORIDE
     Dosage: 60 MG, INITIAL LOADING DOSE
     Dates: start: 20100726, end: 20100726
  4. INTEGRILIN [Concomitant]
     Active Substance: EPTIFIBATIDE
     Dates: start: 20100726
  5. VITAMIN E /001105/ [Concomitant]

REACTIONS (2)
  - Subarachnoid haemorrhage [Unknown]
  - Intracranial haematoma [Unknown]

NARRATIVE: CASE EVENT DATE: 20100727
